FAERS Safety Report 13983166 (Version 1)
Quarter: 2017Q3

REPORT INFORMATION
  Report Type: Spontaneous
  Country: US (occurrence: US)
  Receive Date: 20170918
  Receipt Date: 20170918
  Transmission Date: 20171128
  Serious: Yes (Life-Threatening, Other)
  Sender: FDA-Public Use
  Company Number: None

PATIENT
  Age: 43 Year
  Sex: Female

DRUGS (1)
  1. LYRICA [Suspect]
     Active Substance: PREGABALIN
     Indication: NEURALGIA

REACTIONS (5)
  - Insomnia [None]
  - Anxiety [None]
  - Suicidal ideation [None]
  - Thinking abnormal [None]
  - Hot flush [None]

NARRATIVE: CASE EVENT DATE: 20170905
